FAERS Safety Report 4943869-4 (Version None)
Quarter: 2006Q1

REPORT INFORMATION
  Report Type: 
  Country: None (occurrence: None)
  Receive Date: 20060310
  Receipt Date: 20060301
  Transmission Date: 20060701
  Serious: Yes (Hospitalization)
  Sender: FDA-Public Use
  Company Number: HQWYE108802MAR06

PATIENT
  Age: 27 Year
  Sex: Female

DRUGS (9)
  1. RAPAMUNE [Suspect]
     Indication: PROPHYLAXIS AGAINST TRANSPLANT REJECTION
     Dosage: 9 MG 1X PER 1 DAY
     Dates: start: 20051126
  2. MYCOPHENOLATE MOFETIL (MYCOPHENOLATE MOFETIL) [Concomitant]
  3. MEPREDNISONE (MEPREDNISONE) [Concomitant]
  4. PRAVASTATIN [Concomitant]
  5. ATENOLOL [Concomitant]
  6. BEZAFIBRATE (BEZAFIBRATE) [Concomitant]
  7. SULFAMETHOXAZOLE + TRIMETHOPRIM [Concomitant]
  8. OMEPRAZOLE [Concomitant]
  9. CIPROFLOXACIN [Concomitant]

REACTIONS (3)
  - BACTERIA URINE IDENTIFIED [None]
  - DRUG INEFFECTIVE [None]
  - TRANSPLANT REJECTION [None]
